FAERS Safety Report 10188737 (Version 1)
Quarter: 2014Q2

REPORT INFORMATION
  Report Type: Spontaneous
  Country: US (occurrence: US)
  Receive Date: 20140522
  Receipt Date: 20140522
  Transmission Date: 20141212
  Serious: No
  Sender: FDA-Public Use
  Company Number: US-SA-2014SA022091

PATIENT
  Age: 63 Year
  Sex: Female

DRUGS (2)
  1. SOLOSTAR [Suspect]
     Indication: DEVICE THERAPY
     Dosage: TAKEN FROM- FOR 11 MONTHS
  2. LANTUS SOLOSTAR [Suspect]
     Indication: TYPE 2 DIABETES MELLITUS
     Dosage: TAKEN FROM- FOR 11 MONTHS DOSE:25 UNIT(S)
     Route: 058

REACTIONS (2)
  - Injection site bruising [Unknown]
  - Off label use [Unknown]
